FAERS Safety Report 13132146 (Version 1)
Quarter: 2017Q1

REPORT INFORMATION
  Report Type: Spontaneous
  Country: FR (occurrence: FR)
  Receive Date: 20170119
  Receipt Date: 20170119
  Transmission Date: 20170428
  Serious: Yes (Other)
  Sender: FDA-Public Use
  Company Number: FR-BEH-2017077249

PATIENT
  Age: 68 Year
  Sex: Male
  Weight: 80 kg

DRUGS (6)
  1. PRIVIGEN [Suspect]
     Active Substance: HUMAN IMMUNOGLOBULIN G
     Indication: DRUG REACTION WITH EOSINOPHILIA AND SYSTEMIC SYMPTOMS
     Dosage: 30 ML, UNK
     Route: 042
     Dates: start: 20170106, end: 20170106
  2. SOLU-MEDROL [Concomitant]
     Active Substance: METHYLPREDNISOLONE SODIUM SUCCINATE
     Dosage: 1000 MG, UNK
     Route: 040
     Dates: start: 20170106, end: 201701
  3. VANCOMYCIN [Concomitant]
     Active Substance: VANCOMYCIN
     Indication: MEDIASTINITIS
     Dosage: UNK
     Route: 065
     Dates: end: 20170102
  4. PREDNISONE. [Concomitant]
     Active Substance: PREDNISONE
     Dosage: 1 MG/KG
     Route: 065
     Dates: start: 20170109
  5. MEROPENEM. [Concomitant]
     Active Substance: MEROPENEM
     Indication: MEDIASTINITIS
     Dosage: UNK
     Route: 065
     Dates: end: 20170102
  6. STROMECTOL [Concomitant]
     Active Substance: IVERMECTIN
     Indication: PARASITIC INFECTION PROPHYLAXIS
     Dosage: UNK
     Route: 065
     Dates: start: 20170105

REACTIONS (2)
  - Hypotension [Recovered/Resolved]
  - Circulatory collapse [Recovered/Resolved]

NARRATIVE: CASE EVENT DATE: 20170106
